FAERS Safety Report 5981483-2 (Version None)
Quarter: 2008Q4

REPORT INFORMATION
  Report Type: 
  Country: None (occurrence: None)
  Receive Date: 20081205
  Receipt Date: 20081127
  Transmission Date: 20090506
  Serious: Yes (Hospitalization)
  Sender: FDA-Public Use
  Company Number: IT-WYE-H03146808

PATIENT
  Sex: Male

DRUGS (3)
  1. CEFIXORAL [Suspect]
     Indication: PYREXIA
     Route: 048
     Dates: start: 20080205, end: 20080205
  2. TACHIPIRINA [Suspect]
     Indication: PYREXIA
     Dosage: 250 MG, UNKNOWN DOSE
     Route: 048
     Dates: start: 20080203, end: 20080206
  3. ROCEPHIN [Suspect]
     Indication: PYREXIA
     Dosage: 1 MG (FREQUENCY UNKNOWN)
     Route: 042
     Dates: start: 20080205, end: 20080205

REACTIONS (4)
  - ERYTHEMA MULTIFORME [None]
  - PERICARDIAL EFFUSION [None]
  - SEPSIS [None]
  - STEVENS-JOHNSON SYNDROME [None]
